FAERS Safety Report 9058722 (Version 3)
Quarter: 2013Q1

REPORT INFORMATION
  Report Type: Spontaneous
  Country: US (occurrence: US)
  Receive Date: 20130204
  Receipt Date: 20130312
  Transmission Date: 20140127
  Serious: Yes (Other)
  Sender: FDA-Public Use
  Company Number: US-BAXTER-2012BAX001553

PATIENT
  Age: 54 None
  Sex: Male
  Weight: 68.9 kg

DRUGS (7)
  1. GAMMAGARD LIQUID [Suspect]
     Indication: IMMUNODEFICIENCY COMMON VARIABLE
     Route: 042
     Dates: start: 201203, end: 201203
  2. GAMMAGARD LIQUID [Suspect]
     Route: 042
     Dates: start: 20120412, end: 20120412
  3. GAMMAGARD LIQUID [Suspect]
     Route: 042
     Dates: start: 20120509
  4. HIZENTRA [Suspect]
     Indication: IMMUNODEFICIENCY COMMON VARIABLE
     Route: 058
  5. VITAMIN B-12 [Concomitant]
     Indication: VITAMIN B12 DEFICIENCY
     Route: 030
  6. DURAGESIC [Concomitant]
     Indication: PAIN
     Dosage: 25-50 MICROGRAMS
     Route: 062
  7. XANAX [Concomitant]
     Indication: PRODUCT USED FOR UNKNOWN INDICATION
     Route: 048

REACTIONS (3)
  - Meningitis aseptic [Unknown]
  - Chronic inflammatory demyelinating polyradiculoneuropathy [Unknown]
  - Chest discomfort [Recovered/Resolved]
